FAERS Safety Report 6211969-7 (Version None)
Quarter: 2009Q2

REPORT INFORMATION
  Report Type: 
  Country: None (occurrence: None)
  Receive Date: 20090529
  Receipt Date: 20090518
  Transmission Date: 20091009
  Serious: Yes (Other)
  Sender: FDA-Public Use
  Company Number: 2009AP002012

PATIENT
  Age: 41 Year

DRUGS (14)
  1. PREDNISOLONE [Suspect]
     Indication: IMMUNOSUPPRESSION
     Dosage: 5 MG;QD
  2. MYCOPHENOLATE MOFETIL [Suspect]
     Indication: IMMUNOSUPPRESSION
     Dosage: 1 GM;QD
  3. TACROLIMUS [Suspect]
     Indication: IMMUNOSUPPRESSION
  4. ANTI-THYMOCYTE GLOBULIN NOS [Suspect]
     Indication: IMMUNOSUPPRESSION
     Dosage: 1.5 MG/KG
  5. METHYLPREDNISOLONE [Suspect]
     Indication: IMMUNOSUPPRESSION
     Dosage: 500 MG ; 20 MG
  6. ALEMTUZUMAB [Suspect]
     Indication: IMMUNOSUPPRESSION
  7. EVEROLIMUS [Suspect]
     Indication: IMMUNOSUPPRESSION
  8. GANCICLOVIR [Suspect]
     Indication: ANTIBIOTIC PROPHYLAXIS
     Dosage: 10 MG/KG;QD;IV
     Route: 042
  9. PIPERACILLIN [Concomitant]
  10. TAZOBACTAM [Concomitant]
  11. FLUCONAZOLE [Concomitant]
  12. VALGANCICLOVIR HCL [Concomitant]
  13. SULFAMETHOXAZOLE AND TRIMETHOPRIM [Concomitant]
  14. TRIMETHOPRIM [Concomitant]

REACTIONS (13)
  - ALTERNARIA INFECTION [None]
  - CLOSTRIDIUM DIFFICILE COLITIS [None]
  - CYTOMEGALOVIRUS INFECTION [None]
  - GRAFT INFECTION [None]
  - HEADACHE [None]
  - HYPERTENSION [None]
  - NEPHROPATHY TOXIC [None]
  - NOSOCOMIAL INFECTION [None]
  - PAPILLOMA VIRAL INFECTION [None]
  - SKIN PAPILLOMA [None]
  - SOFT TISSUE INFECTION [None]
  - SYSTEMIC MYCOSIS [None]
  - TRANSPLANT REJECTION [None]
